FAERS Safety Report 7651667-6 (Version None)
Quarter: 2011Q3

REPORT INFORMATION
  Report Type: 
  Country: None (occurrence: None)
  Receive Date: 20110802
  Receipt Date: 20110505
  Transmission Date: 20111222
  Serious: No
  Sender: FDA-Public Use
  Company Number: US-BAYER-2011-041046

PATIENT
  Sex: Male
  Weight: 93 kg

DRUGS (8)
  1. FERROUS SULFATE TAB [Concomitant]
  2. ASPIRIN [Suspect]
     Indication: ANALGESIC THERAPY
  3. OMEPRAZOLE [Concomitant]
  4. ASPIRIN [Suspect]
     Indication: ARTHRALGIA
     Dosage: 2 DF, QD
     Route: 048
  5. ALEVE (CAPLET) [Suspect]
     Indication: ANALGESIC THERAPY
     Dosage: 2 DF, QD
     Route: 048
  6. METFORMIN HCL [Concomitant]
  7. LISINOPRIL [Concomitant]
  8. ASPIRIN [Concomitant]
     Dosage: 81 MG, UNK

REACTIONS (1)
  - NO ADVERSE EVENT [None]
